FAERS Safety Report 25834889 (Version 1)
Quarter: 2025Q3

REPORT INFORMATION
  Report Type: Spontaneous
  Country: CN (occurrence: CN)
  Receive Date: 20250923
  Receipt Date: 20250923
  Transmission Date: 20251020
  Serious: Yes (Life-Threatening, Hospitalization)
  Sender: REGENERON
  Company Number: CN-BAYER-2025A124320

PATIENT
  Sex: Female

DRUGS (8)
  1. EYLEA [Suspect]
     Active Substance: AFLIBERCEPT
     Indication: Neovascular age-related macular degeneration
     Route: 031
     Dates: start: 20250916, end: 20250916
  2. AMLODIPINE [Concomitant]
     Active Substance: AMLODIPINE BESYLATE
     Indication: Product used for unknown indication
     Route: 048
  3. EDOXABAN TOSYLATE [Concomitant]
     Active Substance: EDOXABAN TOSYLATE
     Indication: Product used for unknown indication
     Route: 048
     Dates: start: 2025
  4. DIOSMIN [Concomitant]
     Active Substance: DIOSMIN
     Indication: Product used for unknown indication
     Route: 048
     Dates: start: 2025
  5. HAI KUN SHEN XI [Concomitant]
     Indication: Product used for unknown indication
     Route: 048
  6. KAI TONG [(RS)-3 METHYL-2-OXOVALERIANIC ACID CALCIUM;(RS)-3-METHYL-2-O [Concomitant]
     Indication: Product used for unknown indication
     Route: 048
  7. DIETARY SUPPLEMENT\OPHIOCORDYCEPS SINENSIS [Concomitant]
     Active Substance: DIETARY SUPPLEMENT\OPHIOCORDYCEPS SINENSIS
     Indication: Product used for unknown indication
     Route: 048
  8. HERBALS [Concomitant]
     Active Substance: HERBALS
     Indication: Product used for unknown indication
     Route: 048

REACTIONS (6)
  - Cerebral haemorrhage [Unknown]
  - Confusional state [Unknown]
  - Indifference [Unknown]
  - Dysarthria [Unknown]
  - Blood pressure systolic increased [Unknown]
  - Injection site pain [Unknown]

NARRATIVE: CASE EVENT DATE: 20250916
